FAERS Safety Report 7076153-6 (Version None)
Quarter: 2010Q4

REPORT INFORMATION
  Report Type: 
  Country: None (occurrence: None)
  Receive Date: 20101101
  Receipt Date: 20101014
  Transmission Date: 20110411
  Serious: Yes (Hospitalization, Other)
  Sender: FDA-Public Use
  Company Number: US-BAYER-200938789NA

PATIENT
  Age: 18 Year
  Sex: Female
  Weight: 68 kg

DRUGS (2)
  1. YAZ [Suspect]
     Indication: ORAL CONTRACEPTION
     Route: 048
     Dates: start: 20080601, end: 20090101
  2. YASMIN [Suspect]
     Indication: ORAL CONTRACEPTION
     Route: 048

REACTIONS (2)
  - CHOLECYSTECTOMY [None]
  - INJURY [None]
